FAERS Safety Report 6571283-7 (Version None)
Quarter: 2010Q1

REPORT INFORMATION
  Report Type: 
  Country: None (occurrence: None)
  Receive Date: 20100129
  Receipt Date: 20100115
  Transmission Date: 20100710
  Serious: Yes (Other)
  Sender: FDA-Public Use
  Company Number: 1000011462

PATIENT
  Age: 78 Year
  Sex: Female

DRUGS (2)
  1. MEMANTINE HCL [Suspect]
     Dosage: 15 MG
     Dates: start: 20090101
  2. MEMANTINE HCL [Suspect]
     Dosage: 20 MG
     Dates: start: 20090101, end: 20091230

REACTIONS (3)
  - CONFUSIONAL STATE [None]
  - FEAR [None]
  - HALLUCINATION [None]
